FAERS Safety Report 8914562 (Version 42)
Quarter: 2022Q2

REPORT INFORMATION
  Report Type: Other
  Country: CA (occurrence: CA)
  Receive Date: 20121119
  Receipt Date: 20220425
  Transmission Date: 20220720
  Serious: Yes (Other)
  Sender: FDA-Public Use
  Company Number: CA-ROCHE-1155854

PATIENT
  Age: 38 Year
  Sex: Female
  Weight: 74 kg

DRUGS (30)
  1. XOLAIR [Suspect]
     Active Substance: OMALIZUMAB
     Indication: Asthma
     Route: 058
     Dates: start: 20081120
  2. XOLAIR [Suspect]
     Active Substance: OMALIZUMAB
     Route: 058
     Dates: start: 20090414
  3. XOLAIR [Suspect]
     Active Substance: OMALIZUMAB
     Route: 058
     Dates: start: 20131216
  4. XOLAIR [Suspect]
     Active Substance: OMALIZUMAB
     Route: 058
     Dates: start: 20140212
  5. XOLAIR [Suspect]
     Active Substance: OMALIZUMAB
     Dosage: UNK
     Route: 058
     Dates: start: 20160804
  6. XOLAIR [Suspect]
     Active Substance: OMALIZUMAB
     Route: 058
     Dates: start: 20180202
  7. XOLAIR [Suspect]
     Active Substance: OMALIZUMAB
     Route: 058
     Dates: start: 20180219
  8. XOLAIR [Suspect]
     Active Substance: OMALIZUMAB
     Route: 058
     Dates: start: 20180413
  9. XOLAIR [Suspect]
     Active Substance: OMALIZUMAB
     Route: 058
     Dates: start: 20180427
  10. XOLAIR [Suspect]
     Active Substance: OMALIZUMAB
     Route: 058
     Dates: start: 20180622
  11. XOLAIR [Suspect]
     Active Substance: OMALIZUMAB
     Route: 058
     Dates: start: 20180706
  12. XOLAIR [Suspect]
     Active Substance: OMALIZUMAB
     Route: 058
     Dates: start: 20180917
  13. XOLAIR [Suspect]
     Active Substance: OMALIZUMAB
     Route: 058
     Dates: start: 20180928
  14. XOLAIR [Suspect]
     Active Substance: OMALIZUMAB
     Route: 058
     Dates: start: 20181012
  15. XOLAIR [Suspect]
     Active Substance: OMALIZUMAB
     Route: 058
     Dates: start: 20181026
  16. XOLAIR [Suspect]
     Active Substance: OMALIZUMAB
     Route: 058
     Dates: start: 20190104
  17. XOLAIR [Suspect]
     Active Substance: OMALIZUMAB
     Route: 058
     Dates: start: 20190118
  18. XOLAIR [Suspect]
     Active Substance: OMALIZUMAB
     Route: 058
     Dates: start: 20190301
  19. XOLAIR [Suspect]
     Active Substance: OMALIZUMAB
     Route: 058
     Dates: start: 20190416
  20. XOLAIR [Suspect]
     Active Substance: OMALIZUMAB
     Route: 058
     Dates: start: 20190531
  21. XOLAIR [Suspect]
     Active Substance: OMALIZUMAB
     Route: 058
     Dates: start: 20191001
  22. XOLAIR [Suspect]
     Active Substance: OMALIZUMAB
     Route: 058
     Dates: start: 20191114
  23. XOLAIR [Suspect]
     Active Substance: OMALIZUMAB
     Route: 058
     Dates: start: 20191212
  24. XOLAIR [Suspect]
     Active Substance: OMALIZUMAB
     Route: 058
     Dates: start: 20191227
  25. XOLAIR [Suspect]
     Active Substance: OMALIZUMAB
     Route: 058
     Dates: start: 2019
  26. CORTISONE [Suspect]
     Active Substance: CORTISONE
     Indication: Product used for unknown indication
     Route: 065
  27. ADVAIR HFA [Concomitant]
     Active Substance: FLUTICASONE PROPIONATE\SALMETEROL XINAFOATE
  28. SINGULAIR [Concomitant]
     Active Substance: MONTELUKAST SODIUM
  29. UNIPHYL [Concomitant]
     Active Substance: THEOPHYLLINE ANHYDROUS
  30. QVAR [Concomitant]
     Active Substance: BECLOMETHASONE DIPROPIONATE

REACTIONS (54)
  - Pneumonia [Recovered/Resolved]
  - Influenza [Unknown]
  - Post procedural pneumonia [Unknown]
  - Lacrimation increased [Unknown]
  - Bronchial disorder [Unknown]
  - Myalgia [Unknown]
  - Tachycardia [Unknown]
  - Asthenia [Unknown]
  - Palpitations [Unknown]
  - Depression [Unknown]
  - Chest pain [Unknown]
  - Muscle spasms [Unknown]
  - Injection site pain [Unknown]
  - General physical health deterioration [Recovering/Resolving]
  - Acne [Unknown]
  - Post procedural constipation [Not Recovered/Not Resolved]
  - Nasopharyngitis [Unknown]
  - Sputum abnormal [Unknown]
  - Sputum discoloured [Recovered/Resolved]
  - Nasal congestion [Unknown]
  - Pyrexia [Recovered/Resolved]
  - Sneezing [Unknown]
  - Nasal polyps [Unknown]
  - Heavy menstrual bleeding [Unknown]
  - Wheezing [Unknown]
  - Asthma [Unknown]
  - Pigmentation disorder [Unknown]
  - Bone fragmentation [Unknown]
  - Pain in jaw [Unknown]
  - Osteitis [Unknown]
  - Tooth fracture [Unknown]
  - Contusion [Unknown]
  - Rhinorrhoea [Unknown]
  - Constipation [Unknown]
  - Drug intolerance [Unknown]
  - Productive cough [Recovered/Resolved]
  - Rash [Unknown]
  - Dyspnoea [Unknown]
  - Musculoskeletal stiffness [Unknown]
  - Fatigue [Unknown]
  - Headache [Unknown]
  - Hypertension [Unknown]
  - Arthralgia [Unknown]
  - Pain [Unknown]
  - Tendonitis [Unknown]
  - Heart rate increased [Recovering/Resolving]
  - Migraine [Recovered/Resolved]
  - Injection site bruising [Unknown]
  - Weight decreased [Recovered/Resolved]
  - Musculoskeletal chest pain [Recovering/Resolving]
  - Nasal discharge discolouration [Unknown]
  - Trigger finger [Unknown]
  - Fall [Unknown]
  - Head injury [Unknown]

NARRATIVE: CASE EVENT DATE: 20130201
